FAERS Safety Report 7492109-3 (Version None)
Quarter: 2011Q1

REPORT INFORMATION
  Report Type: 
  Country: None (occurrence: None)
  Receive Date: 20110318
  Receipt Date: 20100329
  Transmission Date: 20110831
  Serious: Yes (Other)
  Sender: FDA-Public Use
  Company Number: 2009SP020513

PATIENT
  Age: 54 Year
  Sex: Male

DRUGS (3)
  1. RIBAVIRIN [Suspect]
     Indication: HEPATITIS C
     Dosage: 1200 MG; QD
     Dates: start: 20040902, end: 20050901
  2. PEG-INTRON [Suspect]
     Indication: HEPATITIS C
     Dosage: 150 MCG; QW
     Dates: start: 20040902, end: 20050901
  3. HYDROCODONE BITARTRATE [Concomitant]

REACTIONS (13)
  - DEAFNESS NEUROSENSORY [None]
  - DYSGEUSIA [None]
  - PAIN [None]
  - HEADACHE [None]
  - BURNING SENSATION [None]
  - POOR QUALITY SLEEP [None]
  - PRURITUS [None]
  - SPINAL DISORDER [None]
  - INJURY [None]
  - VARICOSE VEIN [None]
  - FOLLICULITIS [None]
  - MUSCLE STRAIN [None]
  - IRON DEFICIENCY ANAEMIA [None]
